FAERS Safety Report 10369129 (Version 1)
Quarter: 2014Q1

REPORT INFORMATION
  Report Type: Spontaneous
  Country: US (occurrence: None)
  Receive Date: 20140306
  Receipt Date: 20140306
  Transmission Date: 20141002
  Serious: Yes (Other)
  Sender: FDA-Public Use
  Company Number: 163-21880-13091448

PATIENT
  Age: 69 Year
  Sex: Male

DRUGS (11)
  1. REVLIMID (LENALIDOMIDE) (5 MILLIGRAM, CAPSULES) [Suspect]
     Indication: MYELODYSPLASTIC SYNDROME
     Dosage: 5 MG, 1 IN 2 D, PO
     Route: 048
     Dates: start: 20110916
  2. ROPINIROLE HCL (ROPINIROLE HYDROCHLORIDE) [Concomitant]
  3. SMZ-TMP DS (BACTRIM) [Concomitant]
  4. METOPROLOL TARTRATE (METOPROLOL TARTRATE) [Concomitant]
  5. HYDROCODONE/ACETAMINOPHEN (REMEDEINE) [Concomitant]
  6. TESTOSTERONE (TESTOSTERONE) [Concomitant]
  7. PRADAXA (DABIGATRAN STEXILATE MESILATE) [Concomitant]
  8. LANTUS (INSULIN GLARGINE) [Concomitant]
  9. METFORMIN HCL (METFORMIN HYDROCHLORIDE) [Concomitant]
  10. LISINOPRIL (LISINOPRIL) [Concomitant]
  11. GLIPIZIDE (GLIPIZIDE) [Concomitant]

REACTIONS (1)
  - Atrial fibrillation [None]
